FAERS Safety Report 25410981 (Version 1)
Quarter: 2025Q2

REPORT INFORMATION
  Report Type: Spontaneous
  Country: BR (occurrence: BR)
  Receive Date: 20250609
  Receipt Date: 20250609
  Transmission Date: 20250716
  Serious: Yes (Death, Hospitalization, Other)
  Sender: EXELA PHARMA SCIENCES
  Company Number: BR-EXELAPHARMA-2025EXLA00101

PATIENT
  Age: 57 Year
  Sex: Male

DRUGS (1)
  1. GANCICLOVIR [Suspect]
     Active Substance: GANCICLOVIR
     Indication: Cytomegalovirus infection
     Dates: start: 201405

REACTIONS (7)
  - Rash pruritic [Not Recovered/Not Resolved]
  - Eosinophilia [Not Recovered/Not Resolved]
  - Ventricular dysfunction [Not Recovered/Not Resolved]
  - Eosinophilic myocarditis [Not Recovered/Not Resolved]
  - Drug reaction with eosinophilia and systemic symptoms [Not Recovered/Not Resolved]
  - Cardiogenic shock [Not Recovered/Not Resolved]
  - Death [Fatal]

NARRATIVE: CASE EVENT DATE: 20140501
